FAERS Safety Report 11180806 (Version 1)
Quarter: 2015Q2

REPORT INFORMATION
  Report Type: Spontaneous
  Country: US (occurrence: None)
  Receive Date: 20150610
  Receipt Date: 20150610
  Transmission Date: 20150821
  Serious: Yes (Disabling)
  Sender: FDA-Public Use
  Company Number: None

PATIENT
  Age: 73 Year
  Sex: Female
  Weight: 122 kg

DRUGS (4)
  1. DIGOXIN. [Concomitant]
     Active Substance: DIGOXIN
  2. TERBINAFINE [Suspect]
     Active Substance: TERBINAFINE
     Indication: ONYCHOMYCOSIS
     Dosage: BY MOUTH, 3 CONGTAINERS, 30 IN EACH ONE FOR TOTAL OF 90 PILLS.
     Route: 048
     Dates: start: 20150408, end: 20150518
  3. METOPROLOL [Concomitant]
     Active Substance: METOPROLOL
  4. XARELTO [Concomitant]
     Active Substance: RIVAROXABAN

REACTIONS (16)
  - Pharyngitis [None]
  - Depression [None]
  - Ageusia [None]
  - Pharyngeal inflammation [None]
  - Fatigue [None]
  - Dysphagia [None]
  - Weight decreased [None]
  - Insomnia [None]
  - Dry mouth [None]
  - Parosmia [None]
  - Fear [None]
  - Influenza like illness [None]
  - Dysgeusia [None]
  - Decreased appetite [None]
  - Oropharyngeal pain [None]
  - Alopecia [None]

NARRATIVE: CASE EVENT DATE: 20150507
